FAERS Safety Report 10223234 (Version 6)
Quarter: 2014Q3

REPORT INFORMATION
  Report Type: Spontaneous
  Country: JP (occurrence: JP)
  Receive Date: 20140609
  Receipt Date: 20140908
  Transmission Date: 20150326
  Serious: Yes (Death, Hospitalization, Other)
  Sender: FDA-Public Use
  Company Number: JP-BRISTOL-MYERS SQUIBB COMPANY-20886404

PATIENT
  Age: 75 Year
  Sex: Female
  Weight: 64 kg

DRUGS (13)
  1. BYETTA [Suspect]
     Active Substance: EXENATIDE
     Indication: TYPE 2 DIABETES MELLITUS
     Dosage: BYETTA SUBCUTANEOUS INJECTION 5MCG PEN 300
     Route: 058
     Dates: start: 20140314, end: 20140314
  2. BAKTAR [Concomitant]
     Active Substance: SULFAMETHOXAZOLE\TRIMETHOPRIM
  3. PREDNISOLONE. [Concomitant]
     Active Substance: PREDNISOLONE
     Indication: RHEUMATOID ARTHRITIS
  4. CELECOXIB. [Concomitant]
     Active Substance: CELECOXIB
  5. TULOBUTEROL HCL [Concomitant]
  6. MUCODYNE [Concomitant]
     Active Substance: CARBOCYSTEINE
  7. GLIMEPIRIDE. [Concomitant]
     Active Substance: GLIMEPIRIDE
     Indication: TYPE 2 DIABETES MELLITUS
     Dosage: UNK
     Route: 048
  8. REBAMIPIDE [Concomitant]
     Active Substance: REBAMIPIDE
  9. CEFZON [Concomitant]
     Active Substance: CEFDINIR
  10. EXFORGE [Concomitant]
     Active Substance: AMLODIPINE BESYLATE\VALSARTAN
  11. ISCOTIN [Concomitant]
     Active Substance: ISONIAZID
  12. TACROLIMUS. [Concomitant]
     Active Substance: TACROLIMUS
  13. BASEN [Concomitant]
     Active Substance: VOGLIBOSE

REACTIONS (7)
  - Subcutaneous emphysema [Recovering/Resolving]
  - Vomiting [Recovered/Resolved]
  - Chest pain [Recovered/Resolved]
  - Pneumothorax [Recovering/Resolving]
  - Nausea [Recovered/Resolved]
  - Interstitial lung disease [Fatal]
  - Pneumomediastinum [Recovering/Resolving]

NARRATIVE: CASE EVENT DATE: 20140314
